FAERS Safety Report 10131709 (Version 1)
Quarter: 2014Q2

REPORT INFORMATION
  Report Type: Spontaneous
  Country: AR (occurrence: AR)
  Receive Date: 20140428
  Receipt Date: 20140428
  Transmission Date: 20141212
  Serious: Yes (Other)
  Sender: FDA-Public Use
  Company Number: AR-PFIZER INC-2014114039

PATIENT
  Age: 52 Year
  Sex: Female

DRUGS (1)
  1. AXITINIB [Suspect]
     Indication: CLEAR CELL RENAL CELL CARCINOMA
     Dosage: 5 MG, 2X/DAY
     Dates: start: 201308

REACTIONS (4)
  - Neutropenia [Unknown]
  - Anaemia [Unknown]
  - Hypertension [Unknown]
  - Pulmonary mass [Unknown]
